FAERS Safety Report 8476828 (Version 9)
Quarter: 2014Q2

REPORT INFORMATION
  Report Type: Spontaneous
  Country: CA (occurrence: CA)
  Receive Date: 20120326
  Receipt Date: 20140408
  Transmission Date: 20141212
  Serious: Yes (Other)
  Sender: FDA-Public Use
  Company Number: CA-ROCHE-1051350

PATIENT
  Age: 52 Year
  Sex: Female

DRUGS (8)
  1. XOLAIR [Suspect]
     Indication: ASTHMA
     Route: 058
     Dates: start: 20110729
  2. XOLAIR [Suspect]
     Route: 058
     Dates: start: 20120302
  3. XOLAIR [Suspect]
     Route: 065
     Dates: start: 20120404
  4. XOLAIR [Suspect]
     Route: 065
  5. XOLAIR [Suspect]
     Route: 058
     Dates: start: 20120829
  6. XOLAIR [Suspect]
     Route: 065
  7. XOLAIR [Suspect]
     Route: 058
     Dates: start: 20131121
  8. XOLAIR [Suspect]
     Route: 058
     Dates: start: 20140327

REACTIONS (11)
  - Tendonitis [Recovering/Resolving]
  - Dyspnoea exertional [Not Recovered/Not Resolved]
  - Wheezing [Recovering/Resolving]
  - Nasopharyngitis [Unknown]
  - Pulmonary congestion [Recovering/Resolving]
  - Hypersensitivity [Not Recovered/Not Resolved]
  - Incorrect dose administered [Unknown]
  - Fatigue [Unknown]
  - Malaise [Unknown]
  - Cough [Not Recovered/Not Resolved]
  - Weight increased [Unknown]
